FAERS Safety Report 17568000 (Version 2)
Quarter: 2020Q2

REPORT INFORMATION
  Report Type: Report from Study
  Country: None (occurrence: US)
  Receive Date: 20200320
  Receipt Date: 20200406
  Transmission Date: 20200713
  Serious: Yes (Hospitalization, Other)
  Sender: FDA-Public Use
  Company Number: US-ABBVIE-20P-163-3326757-00

PATIENT
  Sex: Male

DRUGS (1)
  1. IMBRUVICA [Suspect]
     Active Substance: IBRUTINIB
     Indication: CHRONIC LYMPHOCYTIC LEUKAEMIA
     Route: 048
     Dates: start: 20200228

REACTIONS (7)
  - Dysphagia [Unknown]
  - Kidney infection [Unknown]
  - Sepsis [Unknown]
  - Feeding disorder [Unknown]
  - Cystitis [Unknown]
  - Paralysis [Unknown]
  - Renal failure [Unknown]
